FAERS Safety Report 9535559 (Version 3)
Quarter: 2014Q1

REPORT INFORMATION
  Report Type: Spontaneous
  Country: US (occurrence: US)
  Receive Date: 20130919
  Receipt Date: 20140313
  Transmission Date: 20141002
  Serious: No
  Sender: FDA-Public Use
  Company Number: US-B.I. PHARMACEUTICALS,INC./RIDGEFIELD-2013-BI-28278BP

PATIENT
  Age: 70 Year
  Sex: Female
  Weight: 49 kg

DRUGS (6)
  1. COMBIVENT [Suspect]
     Indication: CHRONIC OBSTRUCTIVE PULMONARY DISEASE
     Dosage: DOSE PER APPLICATION: 20 MCG / 100 MCG; DAILY DOSE: 80 MCG/400 MCG
     Route: 055
     Dates: start: 201308, end: 201309
  2. DILTIAZEM ER [Concomitant]
     Indication: HYPERTENSION
     Dosage: 240 MG
     Route: 065
     Dates: start: 2009
  3. ASPIRIN [Concomitant]
     Indication: CARDIAC DISORDER
     Dosage: DAILY DOSE: 1/2 TABLET
     Route: 065
  4. ALPRAZOLEM [Concomitant]
     Indication: ANXIETY
     Route: 048
     Dates: start: 2013
  5. PREDNISONE [Concomitant]
     Indication: CHRONIC OBSTRUCTIVE PULMONARY DISEASE
     Route: 048
  6. PROAIR HFA [Concomitant]
     Indication: CHRONIC OBSTRUCTIVE PULMONARY DISEASE
     Route: 055

REACTIONS (3)
  - Increased upper airway secretion [Recovered/Resolved]
  - Drug ineffective [Unknown]
  - Product quality issue [Unknown]
